FAERS Safety Report 8359893-8 (Version None)
Quarter: 2012Q2

REPORT INFORMATION
  Report Type: 
  Country: None (occurrence: None)
  Receive Date: 20120515
  Receipt Date: 20120510
  Transmission Date: 20120825
  Serious: Yes (Other)
  Sender: FDA-Public Use
  Company Number: US-PFIZER INC-2012115193

PATIENT
  Sex: Female
  Weight: 122 kg

DRUGS (4)
  1. LIPITOR [Concomitant]
     Dosage: UNK
  2. UNIVASC [Concomitant]
     Dosage: UNK
  3. PROTONIX [Suspect]
     Indication: GASTROOESOPHAGEAL REFLUX DISEASE
     Dosage: 40 MG, ONCE A DAY
     Route: 048
     Dates: end: 20120401
  4. EFFEXOR XR [Concomitant]
     Dosage: UNK

REACTIONS (3)
  - VITAMIN B COMPLEX DEFICIENCY [None]
  - MEMORY IMPAIRMENT [None]
  - VITAMIN D DECREASED [None]
